FAERS Safety Report 6187242-2 (Version None)
Quarter: 2009Q2

REPORT INFORMATION
  Report Type: 
  Country: None (occurrence: None)
  Receive Date: 20090512
  Receipt Date: 20090407
  Transmission Date: 20091009
  Serious: No
  Sender: FDA-Public Use
  Company Number: US-BAYER-200911145BCC

PATIENT
  Age: 64 Year
  Sex: Female
  Weight: 75 kg

DRUGS (4)
  1. ALEVE [Suspect]
     Indication: FIBROMYALGIA
     Dosage: UNIT DOSE: 220 MG
     Route: 048
     Dates: start: 20080401, end: 20080401
  2. LIPITOR [Concomitant]
     Dosage: UNK
  3. FLEXERIL [Concomitant]
     Indication: DRUG USE FOR UNKNOWN INDICATION
     Dosage: UNK
  4. UNKNOWN VITAMINS [Concomitant]
     Indication: DRUG USE FOR UNKNOWN INDICATION
     Dosage: UNK

REACTIONS (1)
  - ABDOMINAL PAIN UPPER [None]
